FAERS Safety Report 11173908 (Version 1)
Quarter: 2015Q2

REPORT INFORMATION
  Report Type: Spontaneous
  Country: MX (occurrence: None)
  Receive Date: 20150605
  Receipt Date: 20150605
  Transmission Date: 20150821
  Serious: Yes (Death, Life-Threatening, Hospitalization)
  Sender: FDA-Public Use
  Company Number: ABR_02237_2015

PATIENT
  Sex: Male

DRUGS (1)
  1. GLIADEL [Suspect]
     Active Substance: CARMUSTINE
     Indication: GLIOMA
     Dosage: (61.6 MG 1X, 7.7 MG WAFERS 8 TOTAL INTRACEREBRAL)
     Dates: start: 20150422

REACTIONS (3)
  - Brain oedema [None]
  - Neurological decompensation [None]
  - Cerebral haemorrhage [None]

NARRATIVE: CASE EVENT DATE: 20150502
